FAERS Safety Report 21412759 (Version 1)
Quarter: 2022Q4

REPORT INFORMATION
  Report Type: Spontaneous
  Country: US (occurrence: US)
  Receive Date: 20221005
  Receipt Date: 20221005
  Transmission Date: 20230113
  Serious: No
  Sender: FDA-Public Use
  Company Number: US-SANOFI-01296430

PATIENT
  Age: 50 Year
  Sex: Female

DRUGS (1)
  1. DUPIXENT [Suspect]
     Active Substance: DUPILUMAB
     Indication: Pulmonary eosinophilia
     Dosage: 600 MG 1X
     Route: 058
     Dates: start: 20220925, end: 20220925

REACTIONS (2)
  - Product use in unapproved indication [Unknown]
  - Injection site pain [Unknown]

NARRATIVE: CASE EVENT DATE: 20220925
